FAERS Safety Report 18109810 (Version 7)
Quarter: 2020Q4

REPORT INFORMATION
  Report Type: Spontaneous
  Country: FI (occurrence: FI)
  Receive Date: 20200804
  Receipt Date: 20201013
  Transmission Date: 20210113
  Serious: Yes (Other)
  Sender: FDA-Public Use
  Company Number: FI-BRISTOL-MYERS SQUIBB COMPANY-BMS-2020-061255

PATIENT
  Age: 77 Year
  Sex: Female

DRUGS (14)
  1. AMIKACIN SULFATE. [Suspect]
     Active Substance: AMIKACIN SULFATE
     Indication: PRODUCT USED FOR UNKNOWN INDICATION
     Dosage: UNK
     Route: 065
     Dates: start: 2019
  2. TOBI PODHALER [Suspect]
     Active Substance: TOBRAMYCIN
     Dosage: 4 DOSAGE FORM, BID (4 DOSAGE FORM BID,INHALED TWICE A DAY FOR 28 DAYS, THEN A 28-DAY BREAK)
     Dates: start: 20190425
  3. TOBI PODHALER [Suspect]
     Active Substance: TOBRAMYCIN
     Dosage: 8 DOSAGE FORM
  4. TOBI PODHALER [Suspect]
     Active Substance: TOBRAMYCIN
     Dosage: UNK (4 DOSAGE FORM BID,INHALED TWICE A DAY FOR 28 DAYS, THEN A 28-DAY BREAK)
     Dates: start: 20190425
  5. CIPROFLOXACIN. [Concomitant]
     Active Substance: CIPROFLOXACIN
     Indication: PRODUCT USED FOR UNKNOWN INDICATION
     Dosage: 250 MILLIGRAM, BID (FOR 14 DAYS)
     Dates: start: 20200430
  6. AZTREONAM. [Suspect]
     Active Substance: AZTREONAM
     Indication: PRODUCT USED FOR UNKNOWN INDICATION
     Dosage: UNK
     Route: 065
     Dates: start: 2020
  7. TOBI PODHALER [Suspect]
     Active Substance: TOBRAMYCIN
     Indication: PNEUMONIA
     Dosage: 1 DOSAGE FORM, BID
     Dates: start: 20200807
  8. NYSTATIN. [Concomitant]
     Active Substance: NYSTATIN
     Indication: PRODUCT USED FOR UNKNOWN INDICATION
     Dosage: 1 MILLIGRAM, QID (1 MILLIGRAM, 4 TIMES A DAY FOR A MONTH)
     Route: 065
     Dates: start: 20190425
  9. TOBI PODHALER [Suspect]
     Active Substance: TOBRAMYCIN
     Dosage: 4 DOSAGE FORM (4 WEEKS EVERY MORNING AND EVERY EVENING, THEN 4 THEN WEEKS BREAK AND NEXT 4 WEEKS EVE
     Dates: start: 20200604
  10. TOBI PODHALER [Suspect]
     Active Substance: TOBRAMYCIN
     Dosage: UNK
  11. DOXIMED [DOXYCYCLINE HYCLATE] [Concomitant]
     Indication: PRODUCT USED FOR UNKNOWN INDICATION
     Dosage: 150 MILLIGRAM, QD
     Route: 065
     Dates: start: 20200131
  12. TOBI PODHALER [Suspect]
     Active Substance: TOBRAMYCIN
     Dosage: UNK (4X4 TWICW A DAY)
     Dates: start: 20200610
  13. TOBI PODHALER [Suspect]
     Active Substance: TOBRAMYCIN
     Indication: PSEUDOMONAS INFECTION
     Dosage: UNK UNK, BID
     Route: 055
     Dates: start: 20200708, end: 20200708
  14. AVELOX [Concomitant]
     Active Substance: MOXIFLOXACIN HYDROCHLORIDE
     Indication: PRODUCT USED FOR UNKNOWN INDICATION
     Dosage: 400 MILLIGRAM, QD
     Route: 065
     Dates: start: 20200410, end: 20200419

REACTIONS (8)
  - Lung disorder [Unknown]
  - Disease recurrence [Unknown]
  - Cough [Unknown]
  - Sputum discoloured [Unknown]
  - Sputum increased [Unknown]
  - Sputum abnormal [Unknown]
  - Haemoptysis [Unknown]
  - Purulent discharge [Unknown]

NARRATIVE: CASE EVENT DATE: 2020
